FAERS Safety Report 7122925-9 (Version None)
Quarter: 2010Q4

REPORT INFORMATION
  Report Type: 
  Country: None (occurrence: None)
  Receive Date: 20101124
  Receipt Date: 20101119
  Transmission Date: 20110411
  Serious: Yes (Death, Hospitalization, Other)
  Sender: FDA-Public Use
  Company Number: US-CELGENEUS-163-21880-10102409

PATIENT
  Age: 82 Year
  Sex: Female
  Weight: 65 kg

DRUGS (4)
  1. REVLIMID [Suspect]
     Indication: MYELODYSPLASTIC SYNDROME
     Route: 048
     Dates: start: 20090731
  2. REVLIMID [Suspect]
     Route: 048
     Dates: start: 20100923, end: 20100923
  3. EPOETIN ALFA [Concomitant]
     Dosage: 60,000 UNITS
     Route: 058
     Dates: start: 20090731
  4. EPOETIN ALFA [Concomitant]
     Dosage: 60,000 UNITS
     Route: 058
     Dates: start: 20100923, end: 20100923

REACTIONS (3)
  - ABDOMINAL PAIN [None]
  - LYMPHOMA [None]
  - SOFT TISSUE INFECTION [None]
